FAERS Safety Report 25890448 (Version 3)
Quarter: 2025Q4

REPORT INFORMATION
  Report Type: Spontaneous
  Country: CA (occurrence: CA)
  Receive Date: 20251007
  Receipt Date: 20251204
  Transmission Date: 20260118
  Serious: Yes (Other)
  Sender: PFIZER
  Company Number: CA-PFIZER INC-202500154682

PATIENT
  Age: 63 Year
  Sex: Male

DRUGS (3)
  1. RUXIENCE [Suspect]
     Active Substance: RITUXIMAB-PVVR
     Indication: Rheumatoid arthritis
     Dosage: 1 G, DAY 1 AND 15
     Route: 042
     Dates: start: 20250918
  2. RUXIENCE [Suspect]
     Active Substance: RITUXIMAB-PVVR
     Dosage: 1000 MG, AFTER 10 WEEKS (1 G, DAY 1 AND 15)
     Route: 042
     Dates: start: 20251127
  3. METHOTREXATE [Concomitant]
     Active Substance: METHOTREXATE
     Dosage: 20 MG

REACTIONS (4)
  - Dizziness [Unknown]
  - Hyperhidrosis [Unknown]
  - Heart rate increased [Recovered/Resolved]
  - Chest discomfort [Unknown]

NARRATIVE: CASE EVENT DATE: 20250918
